FAERS Safety Report 8537732-X (Version None)
Quarter: 2012Q3

REPORT INFORMATION
  Report Type: 
  Country: None (occurrence: None)
  Receive Date: 20120725
  Receipt Date: 20120720
  Transmission Date: 20120928
  Serious: Yes (Death, Hospitalization)
  Sender: FDA-Public Use
  Company Number: GXKR2010FR09030

PATIENT
  Age: 80 Year
  Sex: Male

DRUGS (12)
  1. DIOSMECTAL [Concomitant]
  2. POTASSIUM CHLORIDE [Concomitant]
  3. FUROSEMIDE [Concomitant]
  4. SPIRONOLACTONE [Concomitant]
  5. MAGNESIUM SULFATE [Concomitant]
  6. IRINOTECAN HCL [Suspect]
     Indication: COLON CANCER
     Dosage: 1 DF/DAY (CYCLIC)
     Route: 042
     Dates: start: 20081201, end: 20091201
  7. AMIODARONE HYDROCHLORIDE [Concomitant]
  8. FLUOROURACIL [Suspect]
     Indication: COLON CANCER
     Dosage: 1 DF/DAY (CYCLIC)
     Route: 042
     Dates: start: 20081201, end: 20091201
  9. PERINDOPRIL ERBUMINE [Concomitant]
  10. PREVISCAN [Concomitant]
     Indication: ATRIAL FIBRILLATION
  11. ESOMEPRAZOLE [Concomitant]
  12. BISOPROLOL FUMARATE [Concomitant]

REACTIONS (9)
  - WEIGHT INCREASED [None]
  - RIGHT VENTRICULAR FAILURE [None]
  - VENTRICULAR ARRHYTHMIA [None]
  - CARDIOMYOPATHY [None]
  - CARDIAC FAILURE [None]
  - HEPATOJUGULAR REFLUX [None]
  - COLON CANCER [None]
  - ATRIAL FIBRILLATION [None]
  - OEDEMA PERIPHERAL [None]
